FAERS Safety Report 6474972-8 (Version None)
Quarter: 2009Q4

REPORT INFORMATION
  Report Type: 
  Country: None (occurrence: None)
  Receive Date: 20091204
  Receipt Date: 20090616
  Transmission Date: 20100525
  Serious: Yes (Hospitalization)
  Sender: FDA-Public Use
  Company Number: US-ELI_LILLY_AND_COMPANY-US200903000361

PATIENT
  Sex: Male
  Weight: 94.331 kg

DRUGS (5)
  1. BYETTA [Suspect]
     Indication: TYPE 2 DIABETES MELLITUS
     Dosage: 5 UG, 2/D
     Route: 058
     Dates: start: 20060101, end: 20060101
  2. BYETTA [Suspect]
     Dosage: 10 UG, 2/D
     Route: 058
     Dates: start: 20060101, end: 20081001
  3. METFORMIN HCL [Concomitant]
     Dosage: 1000 MG, 2/D
     Dates: start: 20080901
  4. AVANDIA [Concomitant]
     Dosage: 4 MG, 2/D
     Dates: start: 20040101
  5. GLIPIZIDE [Concomitant]
     Dosage: 10 MG, DAILY (1/D)

REACTIONS (2)
  - ONCOCYTOMA [None]
  - TACHYCARDIA [None]
